FAERS Safety Report 16688640 (Version 1)
Quarter: 2019Q3

REPORT INFORMATION
  Report Type: Report from Study
  Country: US (occurrence: US)
  Receive Date: 20190809
  Receipt Date: 20190809
  Transmission Date: 20191004
  Serious: Yes (Other)
  Sender: FDA-Public Use
  Company Number: US-SHIRE-US201920361

PATIENT
  Sex: Female

DRUGS (1)
  1. HUMAN NORMAL IMMUNOGLOBULIN; LIQUID 20 [Suspect]
     Active Substance: HUMAN IMMUNOGLOBULIN G
     Indication: PRIMARY IMMUNODEFICIENCY SYNDROME
     Dosage: UNK
     Route: 065

REACTIONS (10)
  - Infusion site bruising [Unknown]
  - Infusion site swelling [Unknown]
  - Fatigue [Unknown]
  - Infusion site pain [Unknown]
  - Injury associated with device [Unknown]
  - Weight decreased [Unknown]
  - Accidental exposure to product [Unknown]
  - Laryngitis [Unknown]
  - Skin sensitisation [Unknown]
  - Pulmonary mass [Unknown]
